FAERS Safety Report 5148066-8 (Version None)
Quarter: 2006Q4

REPORT INFORMATION
  Report Type: 
  Country: None (occurrence: None)
  Receive Date: 20060918
  Receipt Date: 20050728
  Transmission Date: 20070319
  Serious: Yes (Hospitalization)
  Sender: FDA-Public Use
  Company Number: US-JNJFOC-20050800287

PATIENT
  Age: 45 Year
  Sex: Female
  Weight: 70.3075 kg

DRUGS (4)
  1. TOPAMAX [Suspect]
     Indication: BIPOLAR DISORDER
     Dosage: 100 MG, 2 IN 1 DAY, ORAL
     Route: 048
     Dates: start: 20010101
  2. CYLERT [Concomitant]
  3. EFFEXOR XR [Concomitant]
  4. SEROQUEL [Concomitant]

REACTIONS (1)
  - NEPHROLITHIASIS [None]
